FAERS Safety Report 24985580 (Version 12)
Quarter: 2025Q3

REPORT INFORMATION
  Report Type: Report from Study
  Country: BR (occurrence: BR)
  Receive Date: 20250219
  Receipt Date: 20250819
  Transmission Date: 20251020
  Serious: Yes (Death, Hospitalization, Other)
  Sender: AMGEN
  Company Number: BR-AMGEN-BRASL2025025724

PATIENT
  Age: 61 Year
  Sex: Male

DRUGS (8)
  1. VECTIBIX [Suspect]
     Active Substance: PANITUMUMAB
     Indication: Colorectal cancer metastatic
     Route: 065
     Dates: start: 20250107, end: 2025
  2. LOSARTAN [Concomitant]
     Active Substance: LOSARTAN
     Indication: Hypertension
  3. DEPAKENE [Concomitant]
     Active Substance: VALPROIC ACID
     Route: 065
  4. Sulfato ferroso [Concomitant]
     Route: 065
  5. Cloridrato de amitriptilina [Concomitant]
     Indication: Anxiety
     Route: 065
  6. SPIRONOLACTONE [Concomitant]
     Active Substance: SPIRONOLACTONE
     Indication: Hypertension
  7. VALPROIC ACID [Concomitant]
     Active Substance: VALPROIC ACID
     Indication: Syncope
  8. TRANEXAMIC ACID [Concomitant]
     Active Substance: TRANEXAMIC ACID
     Indication: Haemorrhage

REACTIONS (30)
  - Death [Fatal]
  - Blood glucose decreased [Unknown]
  - Back pain [Not Recovered/Not Resolved]
  - Diarrhoea [Not Recovered/Not Resolved]
  - Illness [Not Recovered/Not Resolved]
  - Syncope [Not Recovered/Not Resolved]
  - Fall [Not Recovered/Not Resolved]
  - Face injury [Unknown]
  - Dizziness [Not Recovered/Not Resolved]
  - Pain [Not Recovered/Not Resolved]
  - Skin lesion [Not Recovered/Not Resolved]
  - Skin exfoliation [Not Recovered/Not Resolved]
  - Acne [Not Recovered/Not Resolved]
  - Dry skin [Not Recovered/Not Resolved]
  - Abdominal pain upper [Not Recovered/Not Resolved]
  - Anal haemorrhage [Not Recovered/Not Resolved]
  - Muscle spasms [Not Recovered/Not Resolved]
  - Peripheral swelling [Not Recovered/Not Resolved]
  - Wound [Not Recovered/Not Resolved]
  - Blister [Recovering/Resolving]
  - Pruritus [Not Recovered/Not Resolved]
  - Abdominal distension [Unknown]
  - Hypoacusis [Unknown]
  - Vomiting [Unknown]
  - Malaise [Not Recovered/Not Resolved]
  - Gait disturbance [Unknown]
  - Asthenia [Not Recovered/Not Resolved]
  - Head injury [Not Recovered/Not Resolved]
  - Hypophagia [Not Recovered/Not Resolved]
  - Tremor [Not Recovered/Not Resolved]

NARRATIVE: CASE EVENT DATE: 20250101
